FAERS Safety Report 7206904-9 (Version None)
Quarter: 2011Q1

REPORT INFORMATION
  Report Type: 
  Country: None (occurrence: None)
  Receive Date: 20110103
  Receipt Date: 20101227
  Transmission Date: 20110831
  Serious: Yes (Death, Other)
  Sender: FDA-Public Use
  Company Number: IT-GENZYME-FLUD-1000569

PATIENT

DRUGS (17)
  1. RED BLOOD CELLS, LEUCOCYTE DEPLETED [Concomitant]
     Indication: ANAEMIA
     Dosage: UNK
     Route: 065
  2. CYTARABINE [Suspect]
     Dosage: 1440 MG/M2, QD FOR DAYS 0 TO 4 OF THE SECOND CYCLE
     Route: 042
  3. CIPROFLOXACIN [Concomitant]
     Indication: INFECTION PROPHYLAXIS
     Dosage: UNK
     Route: 048
  4. AMPHOTERICIN B [Concomitant]
     Indication: ASPERGILLOSIS
     Dosage: UNK
     Route: 065
  5. FLUDARA [Suspect]
     Dosage: 10 MG/M2, ONCE ON DAY 0 FOR SECOND CYCLE
     Route: 042
  6. FLUCONAZOLE [Concomitant]
     Indication: CANDIDIASIS
     Dosage: UNK
     Route: 042
  7. FLUDARA [Suspect]
     Dosage: 20 MG/M2, QD ON DAYS 0 TO 2 FOR SECOND CYCLE
     Route: 042
  8. CYTARABINE [Suspect]
     Dosage: 1440 MG/M2, QD FOR DAYS 0 TO 4 OF THE FIRST CYCLE
     Route: 042
  9. CYTARABINE [Suspect]
     Dosage: 390 MG/M2, ONCE ON DAY 0 FOR SECOND CYCLE
     Route: 042
  10. PLATELETS, CONCENTRATED [Concomitant]
     Indication: THROMBOCYTOPENIA
     Dosage: UNK
     Route: 065
  11. FLUDARA [Suspect]
     Indication: ACUTE MYELOID LEUKAEMIA
     Dosage: 10 MG/M2, ONCE ON DAY 0 FOR FIRST CYCLE
     Route: 042
  12. FLUCONAZOLE [Concomitant]
     Indication: INFECTION PROPHYLAXIS
     Dosage: UNK
     Route: 048
  13. FLUDARA [Suspect]
     Dosage: 20 MG/M2, QD ON DAYS 0 TO 2 FOR FIRST CYCLE
     Route: 042
  14. CYTARABINE [Suspect]
     Indication: ACUTE MYELOID LEUKAEMIA
     Dosage: 390 MG/M2, ONCE ON DAY 0 FOR FIRST CYCLE
     Route: 042
  15. NEUPOGEN [Suspect]
     Indication: ACUTE MYELOID LEUKAEMIA
     Dosage: 5 OR 10 MCG/KG, FROM DAY 15 ONWARD
     Route: 065
  16. IDARUBICIN [Concomitant]
     Indication: BONE MARROW CONDITIONING REGIMEN
     Dosage: UNK
     Route: 065
  17. BUSULFAN [Concomitant]
     Indication: BONE MARROW CONDITIONING REGIMEN
     Dosage: UNK
     Route: 065

REACTIONS (8)
  - BLOOD BILIRUBIN INCREASED [None]
  - HEPATIC ENZYME INCREASED [None]
  - INFECTION [None]
  - CEREBRAL HAEMORRHAGE [None]
  - TUMOUR LYSIS SYNDROME [None]
  - PYREXIA [None]
  - HYPOCALCAEMIA [None]
  - DIARRHOEA [None]
